FAERS Safety Report 9280613 (Version 1)
Quarter: 2013Q2

REPORT INFORMATION
  Report Type: Spontaneous
  Country: US (occurrence: None)
  Receive Date: 20130502
  Receipt Date: 20130502
  Transmission Date: 20140414
  Serious: Yes (Life-Threatening)
  Sender: FDA-Public Use
  Company Number: FK201301315

PATIENT
  Age: 35 Year
  Sex: Female

DRUGS (5)
  1. DIPHENHYDRAMINE [Suspect]
     Indication: RASH
  2. HYDROMORPHONE (HYDROMORPHONE) [Concomitant]
  3. KETOROLAC (KETOROLAC) [Concomitant]
  4. DEXMEDETOMIDINE [Suspect]
  5. STERILE SALINE [Concomitant]

REACTIONS (1)
  - Postoperative ileus [None]
